FAERS Safety Report 21203653 (Version 2)
Quarter: 2023Q1

REPORT INFORMATION
  Report Type: Spontaneous
  Country: US (occurrence: US)
  Receive Date: 20220811
  Receipt Date: 20230203
  Transmission Date: 20230418
  Serious: Yes (Hospitalization)
  Sender: FDA-Public Use
  Company Number: US-009507513-2208USA003390

PATIENT
  Sex: Female

DRUGS (3)
  1. KEYTRUDA [Suspect]
     Active Substance: PEMBROLIZUMAB
     Indication: Endometrial cancer
     Dosage: UNK
     Dates: start: 20230118, end: 202301
  2. LENVATINIB MESYLATE [Suspect]
     Active Substance: LENVATINIB MESYLATE
     Indication: Endometrial cancer
     Dosage: 14 MG ALTERNATING EVERY OTHER DAY WITH 10MG
     Route: 048
     Dates: start: 20220623, end: 202301
  3. LENVATINIB MESYLATE [Suspect]
     Active Substance: LENVATINIB MESYLATE
     Dosage: 10 MG ALTERNATING EVERY OTHER DAY WITH 14 MG
     Route: 048
     Dates: start: 20220623

REACTIONS (6)
  - Oxygen saturation decreased [Unknown]
  - Catheter site haemorrhage [Recovered/Resolved]
  - Flatulence [Unknown]
  - Malaise [Recovered/Resolved]
  - Abdominal discomfort [Unknown]
  - Diarrhoea [Unknown]

NARRATIVE: CASE EVENT DATE: 20220101
